FAERS Safety Report 6892995-1 (Version None)
Quarter: 2010Q3

REPORT INFORMATION
  Report Type: 
  Country: None (occurrence: None)
  Receive Date: 20100731
  Receipt Date: 20081218
  Transmission Date: 20110219
  Serious: Yes (Hospitalization)
  Sender: FDA-Public Use
  Company Number: US-PFIZER INC-2008150333

PATIENT
  Sex: Male

DRUGS (4)
  1. FLAGYL [Suspect]
     Indication: COLITIS
     Dosage: UNK
     Dates: start: 20080818
  2. LEVAQUIN [Suspect]
     Indication: COLITIS
     Dosage: UNK
     Dates: start: 20080818, end: 20080904
  3. BACTRIM DS [Suspect]
     Indication: COLITIS
     Dosage: 2 DOSES
     Dates: start: 20080826
  4. CRESTOR [Concomitant]
     Dosage: UNK

REACTIONS (1)
  - CONVULSION [None]
